FAERS Safety Report 10150460 (Version 2)
Quarter: 2014Q2

REPORT INFORMATION
  Report Type: Spontaneous
  Country: DE (occurrence: DE)
  Receive Date: 20140502
  Receipt Date: 20140603
  Transmission Date: 20141212
  Serious: Yes (Hospitalization)
  Sender: FDA-Public Use
  Company Number: DE-TEVA-478033GER

PATIENT
  Age: 26 Year
  Sex: Female

DRUGS (2)
  1. MCP-RATIOPHARM 4 MG/ML TROPFEN [Suspect]
     Indication: GASTROENTERITIS VIRAL
     Dosage: 135 GTT DAILY;
     Route: 048
     Dates: start: 20140402, end: 20140405
  2. MCP-RATIOPHARM 4 MG/ML TROPFEN [Suspect]
     Indication: NAUSEA

REACTIONS (7)
  - Extrapyramidal disorder [Recovered/Resolved]
  - Dizziness [Recovered/Resolved]
  - Hypersensitivity [Unknown]
  - Swelling face [Unknown]
  - Eyelid oedema [Unknown]
  - Erythema [Unknown]
  - Drug hypersensitivity [Unknown]
